FAERS Safety Report 11992344 (Version 2)
Quarter: 2016Q1

REPORT INFORMATION
  Report Type: Spontaneous
  Country: US (occurrence: US)
  Receive Date: 20160203
  Receipt Date: 20160222
  Transmission Date: 20160526
  Serious: No
  Sender: FDA-Public Use
  Company Number: US-JNJFOC-20160101679

PATIENT
  Age: 66 Year
  Sex: Male
  Weight: 102.06 kg

DRUGS (2)
  1. TYLENOL EXTRA STRENGTH [Suspect]
     Active Substance: ACETAMINOPHEN
     Indication: PROSTATITIS
     Dosage: ABOUT 3 WEEKS
     Route: 048
  2. TYLENOL EXTRA STRENGTH [Suspect]
     Active Substance: ACETAMINOPHEN
     Indication: PROSTATITIS
     Dosage: ABOUT 3 WEEKS
     Route: 048

REACTIONS (4)
  - Off label use [Unknown]
  - Product packaging issue [Unknown]
  - Blood pressure increased [Not Recovered/Not Resolved]
  - Product use issue [Unknown]
